FAERS Safety Report 4419997-9 (Version None)
Quarter: 2004Q3

REPORT INFORMATION
  Report Type: 
  Country: None (occurrence: None)
  Receive Date: 20040805
  Receipt Date: 20040805
  Transmission Date: 20050211
  Serious: Yes (Death, Hospitalization)
  Sender: FDA-Public Use
  Company Number: None

PATIENT
  Age: 67 Year
  Sex: Female
  Weight: 75.9 kg

DRUGS (3)
  1. TOPOTECAN [Suspect]
     Indication: OVARIAN CANCER
     Dosage: 1.25MG/M2 D1-3 Q 21 INTRAVENOUS
     Route: 042
     Dates: start: 20040616, end: 20040618
  2. CARBOPLATIN [Suspect]
     Indication: OVARIAN CANCER
     Dosage: AUC 5 DAY 3 Q 21 INTRAVENOUS
     Route: 042
     Dates: start: 20040618, end: 20040618
  3. LABETALOL HCL [Concomitant]

REACTIONS (5)
  - BONE MARROW DISORDER [None]
  - CARDIO-RESPIRATORY ARREST [None]
  - EMBOLISM [None]
  - PULMONARY EMBOLISM [None]
  - TRANSFUSION REACTION [None]
